FAERS Safety Report 6246995-5 (Version None)
Quarter: 2009Q2

REPORT INFORMATION
  Report Type: 
  Country: None (occurrence: None)
  Receive Date: 20090624
  Receipt Date: 20090624
  Transmission Date: 20091009
  Serious: Yes (Hospitalization)
  Sender: FDA-Public Use
  Company Number: None

PATIENT
  Sex: Male
  Weight: 33.2 kg

DRUGS (3)
  1. CYTARABINE [Suspect]
     Dosage: 28560 MG
     Dates: end: 20090611
  2. G-CSF (FILGRASTIM, AMGEN) [Suspect]
     Dosage: 1870 MCG
     Dates: end: 20090621
  3. ELSPAR [Suspect]
     Dosage: 14280 MG
     Dates: end: 20090611

REACTIONS (15)
  - BLOOD CULTURE POSITIVE [None]
  - BODY TEMPERATURE INCREASED [None]
  - CHILLS [None]
  - COUGH [None]
  - DIARRHOEA [None]
  - HAEMOGLOBIN DECREASED [None]
  - HEART RATE INCREASED [None]
  - HYPOTENSION [None]
  - PLATELET COUNT DECREASED [None]
  - PYREXIA [None]
  - RESPIRATORY RATE INCREASED [None]
  - STREPTOCOCCAL INFECTION [None]
  - SUPRAPUBIC PAIN [None]
  - VOMITING [None]
  - WHITE BLOOD CELL COUNT DECREASED [None]
